FAERS Safety Report 8718262 (Version 2)
Quarter: 2012Q4

REPORT INFORMATION
  Report Type: 
  Country: US (occurrence: US)
  Receive Date: 20120810
  Receipt Date: 20120918
  Transmission Date: 20130627
  Serious: Yes (Death)
  Sender: FDA-Public Use
  Company Number: US-ELI_LILLY_AND_COMPANY-US201208002024

PATIENT
  Age: 67 Year
  Sex: Male
  Weight: 71.88 kg

DRUGS (5)
  1. ALIMTA [Suspect]
     Indication: NON-SMALL CELL LUNG CANCER METASTATIC
     Dosage: 905 mg, single
     Dates: start: 20120726
  2. VITAMIN B12 [Concomitant]
     Dosage: 1000 ug, unknown
     Route: 030
     Dates: start: 20120716
  3. FOLIC ACID [Concomitant]
     Dosage: 1 mg, qd
     Route: 048
     Dates: start: 20120716
  4. DEXAMETHASONE [Concomitant]
     Dosage: UNK, unknown
     Route: 048
     Dates: start: 20120716
  5. CARBOPLATIN [Concomitant]
     Dosage: 510 mg, unknown
     Route: 042
     Dates: start: 20120726

REACTIONS (1)
  - Neoplasm progression [Fatal]
